FAERS Safety Report 10016394 (Version 3)
Quarter: 2014Q2

REPORT INFORMATION
  Report Type: Spontaneous
  Country: JP (occurrence: JP)
  Receive Date: 20140317
  Receipt Date: 20140626
  Transmission Date: 20141212
  Serious: Yes (Hospitalization)
  Sender: FDA-Public Use
  Company Number: JP-MYLANLABS-2014S1005218

PATIENT
  Age: 56 Year
  Sex: Female
  Weight: 42 kg

DRUGS (6)
  1. CARBOPLATIN [Suspect]
     Indication: UTERINE CANCER
     Route: 041
     Dates: start: 20131204, end: 20140205
  2. CARBOPLATIN [Suspect]
     Indication: ENDOMETRIAL ADENOCARCINOMA
     Route: 041
     Dates: start: 20131204, end: 20140205
  3. PACLITAXEL [Suspect]
     Indication: UTERINE CANCER
     Route: 041
     Dates: start: 20131204, end: 20140122
  4. PACLITAXEL [Suspect]
     Indication: ENDOMETRIAL ADENOCARCINOMA
     Route: 041
     Dates: start: 20131204, end: 20140122
  5. DOCETAXEL [Suspect]
     Indication: UTERINE CANCER
     Route: 041
     Dates: start: 20140205, end: 20140205
  6. DOCETAXEL [Suspect]
     Indication: ENDOMETRIAL ADENOCARCINOMA
     Route: 041
     Dates: start: 20140205, end: 20140205

REACTIONS (2)
  - Flushing [Recovering/Resolving]
  - Type IV hypersensitivity reaction [Recovering/Resolving]
